FAERS Safety Report 13270904 (Version 1)
Quarter: 2017Q1

REPORT INFORMATION
  Report Type: Report from Study
  Country: US (occurrence: US)
  Receive Date: 20170225
  Receipt Date: 20170225
  Transmission Date: 20170428
  Serious: Yes (Other)
  Sender: FDA-Public Use
  Company Number: US-TEVA-743537ACC

PATIENT

DRUGS (4)
  1. DEXAMETHASONE. [Suspect]
     Active Substance: DEXAMETHASONE
     Dosage: 20 MG, ONCE DAILY, DAY 1,2,8,9, 15 AND 16
     Route: 048
  2. DEXAMETHASONE. [Suspect]
     Active Substance: DEXAMETHASONE
     Indication: PLASMA CELL MYELOMA
     Dosage: 40 MILLIGRAM DAILY; 40 MG, ONCE DAILY, DAYS 1,2,3,4 OF EACH 28-DAY CYCLE (UP TO 8 CYCLES)
     Route: 048
  3. BENDAMUSTINE HYDROCHLORIDE. [Suspect]
     Active Substance: BENDAMUSTINE HYDROCHLORIDE
     Indication: PLASMA CELL MYELOMA
     Dosage: 80 MG/M2, CYCLIC, DAYS 1,4 AND MODIFIED SCHEMA DAY 1, 2
     Route: 042
  4. BORTEZOMIB [Suspect]
     Active Substance: BORTEZOMIB
     Indication: PLASMA CELL MYELOMA
     Dosage: 1.3 MG/M2, UNKNOWN FREQ. DAYS 1,4,8,11 AND MODIFIED SCHEMA DAY 1, 8 AND 15
     Route: 042

REACTIONS (1)
  - Cardiac failure congestive [Unknown]
